FAERS Safety Report 8163353-7 (Version None)
Quarter: 2012Q1

REPORT INFORMATION
  Report Type: 
  Country: None (occurrence: None)
  Receive Date: 20120224
  Receipt Date: 20120215
  Transmission Date: 20120608
  Serious: No
  Sender: FDA-Public Use
  Company Number: US-B.I. PHARMACEUTICALS,INC./RIDGEFIELD-2012-BP-02986BP

PATIENT
  Sex: Female

DRUGS (9)
  1. LORATADINE [Concomitant]
     Indication: SEASONAL ALLERGY
     Dosage: 10 MG
     Route: 048
  2. PROPRANOLOL [Concomitant]
     Indication: HYPERTENSION
     Dosage: 20 MG
     Route: 048
  3. ALBUTEROL [Concomitant]
     Indication: ASTHMA
     Route: 055
  4. NITROGLYCERIN [Concomitant]
     Indication: CHEST PAIN
  5. FORADIL [Concomitant]
     Indication: ASTHMA
     Dosage: 12 MCG
     Route: 055
  6. DULERA ORAL INHALATION [Concomitant]
     Indication: ASTHMA
     Route: 055
  7. SPIRIVA [Suspect]
     Indication: DYSPNOEA
     Dosage: 18 MCG
     Route: 055
     Dates: start: 20110201
  8. VENTOLIN [Concomitant]
     Indication: ASTHMA
     Dosage: 90 MCG
     Route: 055
  9. ASPIRIN [Concomitant]
     Indication: CARDIAC DISORDER
     Dosage: 81 MG
     Route: 048

REACTIONS (3)
  - PNEUMONIA [None]
  - EMPHYSEMA [None]
  - INAPPROPRIATE SCHEDULE OF DRUG ADMINISTRATION [None]
